FAERS Safety Report 10163835 (Version 2)
Quarter: 2014Q2

REPORT INFORMATION
  Report Type: Spontaneous
  Country: US (occurrence: US)
  Receive Date: 20140509
  Receipt Date: 20140602
  Transmission Date: 20141212
  Serious: Yes (Other)
  Sender: FDA-Public Use
  Company Number: US-ASTRAZENECA-2014SE31355

PATIENT
  Sex: Female

DRUGS (13)
  1. NEXIUM [Suspect]
     Indication: NERVE INJURY
     Route: 048
     Dates: start: 2004
  2. NEXIUM [Suspect]
     Indication: IMPAIRED GASTRIC EMPTYING
     Route: 048
     Dates: start: 2004
  3. NEXIUM [Suspect]
     Indication: GASTROOESOPHAGEAL REFLUX DISEASE
     Route: 048
     Dates: start: 2004
  4. NEXIUM [Suspect]
     Indication: NERVE INJURY
     Route: 048
     Dates: end: 2008
  5. NEXIUM [Suspect]
     Indication: IMPAIRED GASTRIC EMPTYING
     Route: 048
     Dates: end: 2008
  6. NEXIUM [Suspect]
     Indication: GASTROOESOPHAGEAL REFLUX DISEASE
     Route: 048
     Dates: end: 2008
  7. DOMPERIDONE [Concomitant]
  8. CALCIUM CARBONATE [Concomitant]
  9. ZELNORM [Concomitant]
  10. ESTROGENS [Concomitant]
     Indication: HORMONE LEVEL ABNORMAL
  11. PROGESTERON [Concomitant]
     Indication: HORMONE LEVEL ABNORMAL
  12. PEPCID COMPLETE [Concomitant]
  13. UNSPECIFIED MEDICATION FOR INSPECIFIED THYROID CONDITION [Concomitant]
     Indication: THYROID DISORDER

REACTIONS (6)
  - Adverse event [Unknown]
  - Impaired gastric emptying [Unknown]
  - Gastrooesophageal reflux disease [Unknown]
  - Drug ineffective for unapproved indication [Unknown]
  - Vomiting [Unknown]
  - Intentional product misuse [Unknown]
